FAERS Safety Report 8083024-5 (Version None)
Quarter: 2012Q1

REPORT INFORMATION
  Report Type: 
  Country: None (occurrence: None)
  Receive Date: 20120127
  Receipt Date: 20110228
  Transmission Date: 20120608
  Serious: Yes (Other)
  Sender: FDA-Public Use
  Company Number: US-ABBOTT-11P-163-0708405-00

PATIENT
  Age: 44 Year
  Sex: Female

DRUGS (11)
  1. HUMIRA [Suspect]
     Indication: RHEUMATOID ARTHRITIS
     Dates: start: 20100101
  2. SULFACRATE [Concomitant]
     Indication: IRRITABLE BOWEL SYNDROME
  3. PREDNISONE TAB [Concomitant]
     Indication: RHEUMATOID ARTHRITIS
     Dosage: DAILY DOSE: 12.5MG
  4. FOLIC ACID [Concomitant]
     Indication: PRODUCT USED FOR UNKNOWN INDICATION
  5. PLAQUENIL [Concomitant]
     Indication: RHEUMATOID ARTHRITIS
  6. REQUIP [Concomitant]
     Indication: RESTLESS LEGS SYNDROME
     Dosage: TWICE DAILY
  7. METHOTREXATE [Concomitant]
     Indication: RHEUMATOID ARTHRITIS
  8. VITAMIN D [Concomitant]
     Indication: VITAMIN SUPPLEMENTATION
  9. SYNTHROID [Concomitant]
     Indication: HYPOTHYROIDISM
     Dosage: DAILY DOSE: 0.05 MG
  10. ALPRAZOLAM [Concomitant]
     Indication: IRRITABLE BOWEL SYNDROME
  11. NABUTAMENE [Concomitant]
     Indication: RHEUMATOID ARTHRITIS
     Dosage: DAILY DOSE: 1500MG

REACTIONS (4)
  - HYSTERECTOMY [None]
  - NASAL CONGESTION [None]
  - NASOPHARYNGITIS [None]
  - SINUSITIS [None]
